FAERS Safety Report 12876341 (Version 2)
Quarter: 2018Q3

REPORT INFORMATION
  Report Type: Report from Study
  Country: JP (occurrence: JP)
  Receive Date: 20161024
  Receipt Date: 20180731
  Transmission Date: 20181010
  Serious: Yes (Hospitalization)
  Sender: FDA-Public Use
  Company Number: JP-AMGEN-JPNNI2016147391

PATIENT
  Age: 72 Year
  Sex: Male

DRUGS (6)
  1. PHOSBLOCK [Suspect]
     Active Substance: FERRIC HYDROXIDE
     Indication: PRODUCT USED FOR UNKNOWN INDICATION
     Dosage: UNK
     Route: 048
     Dates: start: 20120112, end: 20160428
  2. PHOSBLOCK [Suspect]
     Active Substance: FERRIC HYDROXIDE
     Dosage: UNK
     Route: 048
     Dates: start: 20160428, end: 20160512
  3. CINACALCET HCL ? KHK [Suspect]
     Active Substance: CINACALCET HYDROCHLORIDE
     Indication: PRODUCT USED FOR UNKNOWN INDICATION
     Dosage: UNK
     Route: 048
     Dates: start: 20160128
  4. PHOSBLOCK [Suspect]
     Active Substance: FERRIC HYDROXIDE
     Dosage: UNK
     Route: 048
     Dates: start: 20160512
  5. EPOETIN ALFA [Suspect]
     Active Substance: ERYTHROPOIETIN
     Dosage: UNK
     Route: 042
     Dates: start: 20161013
  6. EPOETIN ALFA [Suspect]
     Active Substance: ERYTHROPOIETIN
     Indication: PRODUCT USED FOR UNKNOWN INDICATION
     Dosage: UNK
     Route: 042
     Dates: start: 20150912, end: 20151014

REACTIONS (3)
  - Hospitalisation [Recovering/Resolving]
  - Cataract [Recovering/Resolving]
  - Angina pectoris [Recovering/Resolving]

NARRATIVE: CASE EVENT DATE: 20160113
